FAERS Safety Report 6035461-8 (Version None)
Quarter: 2009Q1

REPORT INFORMATION
  Report Type: 
  Country: None (occurrence: None)
  Receive Date: 20090112
  Receipt Date: 20090112
  Transmission Date: 20090719
  Serious: Yes (Other)
  Sender: FDA-Public Use
  Company Number: None

PATIENT
  Sex: Female
  Weight: 47.6277 kg

DRUGS (1)
  1. GABAPENTIN [Suspect]
     Indication: MUSCLE SPASMS
     Dosage: ONE CAPSULE 1 Q AM; 2 AT HS PO
     Route: 048
     Dates: start: 20071211, end: 20071223

REACTIONS (2)
  - MUSCLE SPASMS [None]
  - THERAPEUTIC RESPONSE UNEXPECTED WITH DRUG SUBSTITUTION [None]
